FAERS Safety Report 6274170-7 (Version None)
Quarter: 2009Q3

REPORT INFORMATION
  Report Type: 
  Country: None (occurrence: None)
  Receive Date: 20090720
  Receipt Date: 20090708
  Transmission Date: 20100115
  Serious: Yes (Other)
  Sender: FDA-Public Use
  Company Number: US-PFIZER INC-2009239363

PATIENT
  Sex: Female

DRUGS (6)
  1. LYRICA [Suspect]
     Indication: NEURALGIA
     Dosage: UNK
  2. NEURONTIN [Suspect]
     Indication: NEURALGIA
     Dosage: UNK
  3. ESTRADIOL [Concomitant]
  4. CITALOPRAM [Concomitant]
  5. CLONAZEPAM [Concomitant]
  6. LAMICTAL [Concomitant]

REACTIONS (5)
  - FALL [None]
  - HEADACHE [None]
  - MALAISE [None]
  - NAUSEA [None]
  - WEIGHT INCREASED [None]
